FAERS Safety Report 9060777 (Version 1)
Quarter: 2013Q1

REPORT INFORMATION
  Report Type: Report from Study
  Country: US (occurrence: US)
  Receive Date: 20130204
  Receipt Date: 20130204
  Transmission Date: 20140127
  Serious: Yes (Other)
  Sender: FDA-Public Use
  Company Number: US-ASTRAZENECA-2013SE01099

PATIENT
  Age: 17 Year
  Sex: Male
  Weight: 68.9 kg

DRUGS (6)
  1. SEROQUEL [Suspect]
     Indication: SLEEP DISORDER
     Route: 048
     Dates: end: 2009
  2. SEROQUEL [Suspect]
     Indication: SLEEP DISORDER
     Route: 048
     Dates: end: 2012
  3. SEROQUEL [Suspect]
     Indication: SLEEP DISORDER
     Dosage: GENERIC
     Route: 048
     Dates: start: 2012, end: 2012
  4. SEROQUEL [Suspect]
     Indication: SLEEP DISORDER
     Route: 048
     Dates: start: 2012
  5. BUSPAR [Concomitant]
     Indication: ANXIETY
  6. UNSPECIFIED INGREDIENT [Concomitant]

REACTIONS (19)
  - Convulsion [Unknown]
  - Epilepsy [Unknown]
  - Depression [Unknown]
  - Fall [Unknown]
  - Anger [Unknown]
  - Intentional self-injury [Unknown]
  - Head injury [Unknown]
  - Adverse event [Unknown]
  - Impulse-control disorder [Unknown]
  - Traumatic liver injury [Unknown]
  - Autism [Unknown]
  - Thinking abnormal [Unknown]
  - Disease recurrence [Unknown]
  - Aggression [Unknown]
  - Malaise [Unknown]
  - Drug dose omission [Unknown]
  - Drug effect decreased [Unknown]
  - Drug ineffective for unapproved indication [Unknown]
  - Off label use [Unknown]
